FAERS Safety Report 8585965-9 (Version None)
Quarter: 2012Q3

REPORT INFORMATION
  Report Type: 
  Country: None (occurrence: None)
  Receive Date: 20120810
  Receipt Date: 20120731
  Transmission Date: 20120928
  Serious: Yes (Other)
  Sender: FDA-Public Use
  Company Number: JP-ROCHE-1069896

PATIENT
  Sex: Male
  Weight: 52 kg

DRUGS (29)
  1. NESPO [Suspect]
     Route: 042
     Dates: start: 20110708, end: 20110729
  2. NORVASC [Concomitant]
     Route: 048
     Dates: start: 20111010, end: 20120520
  3. LASIX [Concomitant]
     Indication: CARDIAC FAILURE
     Route: 048
     Dates: start: 20110301
  4. PURSENNID [Concomitant]
     Indication: CONSTIPATION
     Route: 048
     Dates: start: 20110301
  5. OXAROL [Concomitant]
     Indication: HYPOCALCAEMIA
     Route: 042
     Dates: start: 20110301, end: 20111110
  6. NESPO [Suspect]
     Route: 042
     Dates: start: 20110624, end: 20110701
  7. NESPO [Suspect]
     Route: 042
     Dates: start: 20110805, end: 20110812
  8. OXAROL [Concomitant]
     Route: 042
     Dates: start: 20111111, end: 20120405
  9. CRESTOR [Concomitant]
     Indication: HYPERLIPIDAEMIA
     Route: 048
     Dates: start: 20110301
  10. MIRCERA [Suspect]
     Route: 042
     Dates: start: 20120316, end: 20120316
  11. DIOVAN [Concomitant]
     Route: 048
     Dates: start: 20110725
  12. NORVASC [Concomitant]
     Indication: HYPERTENSION
     Route: 048
     Dates: start: 20110301, end: 20111009
  13. MIRCERA [Suspect]
     Route: 042
     Dates: start: 20120217, end: 20120217
  14. NESPO [Suspect]
     Route: 042
     Dates: start: 20111021, end: 20111028
  15. NESPO [Suspect]
     Route: 042
     Dates: start: 20120330, end: 20120330
  16. DIOVAN [Concomitant]
     Indication: HYPERTENSION
     Route: 048
     Dates: start: 20110301, end: 20110515
  17. HOKUNALIN [Concomitant]
     Indication: ASTHMA
     Route: 062
     Dates: start: 20110301
  18. MIRCERA [Suspect]
     Indication: NEPHROGENIC ANAEMIA
     Route: 042
     Dates: start: 20111216, end: 20120113
  19. NESPO [Suspect]
     Indication: NEPHROGENIC ANAEMIA
     Route: 042
     Dates: start: 20110422, end: 20110429
  20. GLUCOBAY [Concomitant]
     Indication: DIABETES MELLITUS
     Route: 048
     Dates: start: 20110301
  21. ALLOPURINOL [Concomitant]
     Route: 048
     Dates: start: 20120116
  22. FOSRENOL [Concomitant]
     Indication: HYPERPHOSPHATAEMIA
     Route: 048
     Dates: start: 20110301
  23. PRECIPITATED CALCIUM CARBONATE [Concomitant]
     Indication: HYPERPHOSPHATAEMIA
     Route: 048
     Dates: start: 20110801
  24. NESPO [Suspect]
     Route: 042
     Dates: start: 20110819, end: 20111014
  25. NESPO [Suspect]
     Route: 042
     Dates: start: 20120406
  26. ALLOPURINOL [Concomitant]
     Indication: HYPERURICAEMIA
     Route: 048
     Dates: start: 20110301, end: 20111120
  27. DIOVAN [Concomitant]
     Route: 048
     Dates: start: 20110516, end: 20110724
  28. NORVASC [Concomitant]
     Route: 048
     Dates: start: 20120521
  29. LANSOPRAZOLE [Concomitant]
     Indication: GASTRIC ULCER
     Route: 048
     Dates: start: 20110301

REACTIONS (2)
  - ANAEMIA HAEMOLYTIC AUTOIMMUNE [None]
  - BRONCHITIS [None]
